FAERS Safety Report 15966403 (Version 1)
Quarter: 2019Q1

REPORT INFORMATION
  Report Type: Spontaneous
  Country: US (occurrence: US)
  Receive Date: 20190214
  Receipt Date: 20190214
  Transmission Date: 20190418
  Serious: Yes (Other)
  Sender: FDA-Public Use
  Company Number: None

PATIENT
  Age: 66 Year
  Sex: Female
  Weight: 58.5 kg

DRUGS (8)
  1. LEVOTHYROXINE. [Concomitant]
     Active Substance: LEVOTHYROXINE
  2. LYRICA [Suspect]
     Active Substance: PREGABALIN
     Indication: PAIN
     Dosage: ?          QUANTITY:50 CAPSULE(S);?
     Route: 048
  3. MS CONTIN [Concomitant]
     Active Substance: MORPHINE SULFATE
  4. PROMETHAZINE [Concomitant]
     Active Substance: PROMETHAZINE\PROMETHAZINE HYDROCHLORIDE
  5. PROPRANOLOL [Concomitant]
     Active Substance: PROPRANOLOL HYDROCHLORIDE
  6. TYLENOL [Concomitant]
     Active Substance: ACETAMINOPHEN
  7. CLONAZEPAM. [Concomitant]
     Active Substance: CLONAZEPAM
  8. CENTRIUM VITAMINS [Concomitant]

REACTIONS (11)
  - Tinnitus [None]
  - Facial nerve disorder [None]
  - Loss of libido [None]
  - Amnesia [None]
  - Dyslexia [None]
  - Aphasia [None]
  - Anorgasmia [None]
  - Blood pressure increased [None]
  - Pain [None]
  - Renal pain [None]
  - Withdrawal syndrome [None]

NARRATIVE: CASE EVENT DATE: 20170930
